FAERS Safety Report 5959796-X (Version None)
Quarter: 2008Q4

REPORT INFORMATION
  Report Type: 
  Country: None (occurrence: None)
  Receive Date: 20081120
  Receipt Date: 20081111
  Transmission Date: 20090506
  Serious: Yes (Congenital Anomaly)
  Sender: FDA-Public Use
  Company Number: A0747589A

PATIENT
  Sex: Male

DRUGS (1)
  1. PAXIL [Suspect]
     Indication: DEPRESSION
     Dates: start: 19910101, end: 20070811

REACTIONS (7)
  - BODY HEIGHT BELOW NORMAL [None]
  - CARDIAC DISORDER [None]
  - DRUG EXPOSURE DURING PREGNANCY [None]
  - HAEMORRHAGE [None]
  - LEARNING DISORDER [None]
  - PULMONARY ARTERY STENOSIS CONGENITAL [None]
  - SPEECH DISORDER DEVELOPMENTAL [None]
